FAERS Safety Report 20710019 (Version 2)
Quarter: 2022Q2

REPORT INFORMATION
  Report Type: Spontaneous
  Country: JP (occurrence: JP)
  Receive Date: 20220414
  Receipt Date: 20220421
  Transmission Date: 20220721
  Serious: No
  Sender: FDA-Public Use
  Company Number: JP-MSD-M2022-14691

PATIENT
  Age: 50 Year
  Sex: Male

DRUGS (2)
  1. MOLNUPIRAVIR [Suspect]
     Active Substance: MOLNUPIRAVIR
     Indication: COVID-19 treatment
     Dosage: 800 MILLIGRAM, TID
     Route: 048
     Dates: start: 20220408, end: 202204
  2. VOLTAREN [Concomitant]
     Active Substance: DICLOFENAC SODIUM
     Indication: Hernia
     Dosage: UNK
     Route: 048

REACTIONS (3)
  - Accidental overdose [Unknown]
  - Inappropriate schedule of product administration [Unknown]
  - No adverse event [Unknown]

NARRATIVE: CASE EVENT DATE: 20220408
